FAERS Safety Report 8289574-0 (Version None)
Quarter: 2012Q2

REPORT INFORMATION
  Report Type: 
  Country: None (occurrence: None)
  Receive Date: 20120417
  Receipt Date: 20120409
  Transmission Date: 20120825
  Serious: Yes (Other)
  Sender: FDA-Public Use
  Company Number: PHHY2012BR009841

PATIENT
  Age: 57 Year
  Sex: Female

DRUGS (7)
  1. DIOVAN [Suspect]
     Indication: HYPERTENSION
     Dosage: UNK MG, UNK
  2. ASPIRIN [Concomitant]
     Indication: VEIN DISORDER
     Dosage: 100 MG, TID
  3. SIMVASTATIN [Concomitant]
     Indication: BLOOD CHOLESTEROL
     Dosage: 40 MG, QD
  4. ALLOPURINOL [Concomitant]
     Indication: BLOOD URIC ACID
     Dosage: 100 MG, AT NIGHT
  5. ATENOLOL [Concomitant]
     Indication: HYPERTENSION
     Dosage: 50 MG, QD
  6. DIOVAN [Suspect]
     Dosage: 320 MG, IN THE MORNING
  7. PRESSAT [Concomitant]
     Indication: HYPERTENSION
     Dosage: 5 MG, QD

REACTIONS (10)
  - CEREBROVASCULAR ACCIDENT [None]
  - BONE DISORDER [None]
  - HYPERTENSION [None]
  - PAIN [None]
  - PARALYSIS [None]
  - LIMB DISCOMFORT [None]
  - BURSITIS [None]
  - SPINAL DEFORMITY [None]
  - TRANSIENT ISCHAEMIC ATTACK [None]
  - BONE PAIN [None]
